FAERS Safety Report 4373966-6 (Version None)
Quarter: 2004Q2

REPORT INFORMATION
  Report Type: 
  Country: None (occurrence: None)
  Receive Date: 20040601
  Receipt Date: 20040409
  Transmission Date: 20050107
  Serious: No
  Sender: FDA-Public Use
  Company Number: MPS1-10203

PATIENT
  Age: 10 Year
  Sex: Female
  Weight: 18.1439 kg

DRUGS (3)
  1. ALDURAZYME [Suspect]
     Indication: MUCOPOLYSACCHARIDOSIS I
     Dosage: 0.58 MG/KG QWK IV
     Route: 042
     Dates: start: 20030801
  2. BENADRYL [Concomitant]
  3. TYLENOL [Concomitant]

REACTIONS (5)
  - BLOOD PRESSURE ABNORMAL [None]
  - EAR INFECTION [None]
  - HYPERHIDROSIS [None]
  - PULSE ABNORMAL [None]
  - PYREXIA [None]
